FAERS Safety Report 13346252 (Version 1)
Quarter: 2017Q1

REPORT INFORMATION
  Report Type: Spontaneous
  Country: PE (occurrence: PE)
  Receive Date: 20170317
  Receipt Date: 20170317
  Transmission Date: 20170428
  Serious: Yes (Death, Hospitalization)
  Sender: FDA-Public Use
  Company Number: PE-GLAXOSMITHKLINE-PE2017GSK035575

PATIENT
  Age: 96 Year
  Sex: Male

DRUGS (2)
  1. PANADOL [Suspect]
     Active Substance: ACETAMINOPHEN
     Indication: PYREXIA
     Dosage: UNK
     Route: 048
     Dates: start: 201612
  2. SERETIDE [Suspect]
     Active Substance: FLUTICASONE PROPIONATE\SALMETEROL XINAFOATE
     Indication: PULMONARY FIBROSIS
     Dosage: 250 ?G, QID
     Route: 055
     Dates: start: 20131108

REACTIONS (3)
  - Pyrexia [Fatal]
  - Productive cough [Fatal]
  - Condition aggravated [Fatal]

NARRATIVE: CASE EVENT DATE: 201612
